FAERS Safety Report 6442505-8 (Version None)
Quarter: 2009Q4

REPORT INFORMATION
  Report Type: 
  Country: None (occurrence: None)
  Receive Date: 20091112
  Receipt Date: 20091029
  Transmission Date: 20100525
  Serious: Yes (Other)
  Sender: FDA-Public Use
  Company Number: 2009278727

PATIENT
  Sex: Female

DRUGS (2)
  1. FRAGMIN [Suspect]
     Indication: COAGULOPATHY
     Dosage: UNK, SUBCUTANEOUS
     Route: 058
  2. FRAGMIN [Suspect]
     Indication: PREGNANCY IN HABITUAL ABORTER
     Dosage: UNK, SUBCUTANEOUS
     Route: 058

REACTIONS (4)
  - ABORTION COMPLETE [None]
  - MATERNAL DRUGS AFFECTING FOETUS [None]
  - TREATMENT FAILURE [None]
  - UTERINE HAEMORRHAGE [None]
